FAERS Safety Report 5129378-0 (Version None)
Quarter: 2006Q4

REPORT INFORMATION
  Report Type: 
  Country: None (occurrence: None)
  Receive Date: 20061018
  Receipt Date: 20060117
  Transmission Date: 20070319
  Serious: Yes (Death, Hospitalization)
  Sender: FDA-Public Use
  Company Number: US-AVENTIS-200610602US

PATIENT
  Age: 69 Year
  Sex: Male

DRUGS (3)
  1. LANTUS [Suspect]
     Indication: DIABETES MELLITUS NON-INSULIN-DEPENDENT
     Dates: start: 20041201
  2. ALL OTHER THERAPEUTIC PRODUCTS [Concomitant]
     Dosage: DOSE: UNK
  3. UNKNOWN DRUG [Concomitant]

REACTIONS (4)
  - DRUG INEFFECTIVE [None]
  - HOSPITALISATION [None]
  - PHARMACEUTICAL PRODUCT COMPLAINT [None]
  - SMALL CELL LUNG CANCER STAGE UNSPECIFIED [None]
